FAERS Safety Report 4693957-5 (Version None)
Quarter: 2005Q2

REPORT INFORMATION
  Report Type: 
  Country: None (occurrence: None)
  Receive Date: 20050617
  Receipt Date: 20050204
  Transmission Date: 20051028
  Serious: Yes (Death, Hospitalization)
  Sender: FDA-Public Use
  Company Number: DE-MERCK-0502DEU00058

PATIENT
  Age: 90 Year
  Sex: Female
  Weight: 50 kg

DRUGS (7)
  1. VIOXX [Suspect]
     Indication: PUBIC RAMI FRACTURE
     Route: 048
     Dates: start: 20040311, end: 20040319
  2. VIOXX [Suspect]
     Indication: FRACTURED ISCHIUM
     Route: 048
     Dates: start: 20040311, end: 20040319
  3. DIPYRONE [Concomitant]
     Route: 048
     Dates: start: 20040311
  4. ACETYLDIGOXIN [Concomitant]
     Route: 065
     Dates: start: 19990101
  5. HYDROCHLOROTHIAZIDE AND RAMIPRIL [Concomitant]
     Route: 065
     Dates: start: 19990101
  6. ESOMEPRAZOLE MAGNESIUM [Concomitant]
     Route: 065
     Dates: start: 20040101
  7. VERAPAMIL HYDROCHLORIDE [Concomitant]
     Route: 065
     Dates: start: 20030101

REACTIONS (3)
  - COMA HEPATIC [None]
  - JAUNDICE [None]
  - MALIGNANT NEOPLASM OF AMPULLA OF VATER [None]
